FAERS Safety Report 16330533 (Version 3)
Quarter: 2023Q1

REPORT INFORMATION
  Report Type: Spontaneous
  Country: US (occurrence: US)
  Receive Date: 20190520
  Receipt Date: 20230105
  Transmission Date: 20230418
  Serious: Yes (Death, Hospitalization, Other)
  Sender: FDA-Public Use
  Company Number: US-BAYER-2019-093866

PATIENT
  Age: 64 Year
  Sex: Female

DRUGS (2)
  1. ASPIRIN [Suspect]
     Active Substance: ASPIRIN
     Indication: Self-injurious ideation
     Dosage: UNK
  2. ASPIRIN [Suspect]
     Active Substance: ASPIRIN
     Indication: Intentional overdose

REACTIONS (11)
  - Toxicity to various agents [Fatal]
  - Mental impairment [Fatal]
  - Bezoar [Fatal]
  - Gastric haemorrhage [Fatal]
  - Encephalopathy [Fatal]
  - Acute kidney injury [Fatal]
  - Hypervolaemia [Fatal]
  - Haemodialysis [Fatal]
  - Intentional overdose [Fatal]
  - Tachycardia [Fatal]
  - Tachypnoea [Fatal]
